FAERS Safety Report 10276256 (Version 1)
Quarter: 2014Q3

REPORT INFORMATION
  Report Type: Spontaneous
  Country: FR (occurrence: FR)
  Receive Date: 20140703
  Receipt Date: 20140703
  Transmission Date: 20150326
  Serious: Yes (Hospitalization)
  Sender: FDA-Public Use
  Company Number: FR-009507513-1406FRA012714

PATIENT
  Age: 32 Year
  Sex: Female

DRUGS (1)
  1. NEXPLANON [Suspect]
     Active Substance: ETONOGESTREL
     Dosage: UNK
     Dates: start: 20121227, end: 201406

REACTIONS (3)
  - Menorrhagia [Recovering/Resolving]
  - Paraesthesia [Recovering/Resolving]
  - Device difficult to use [Recovering/Resolving]

NARRATIVE: CASE EVENT DATE: 20140426
